FAERS Safety Report 5566470-0 (Version None)
Quarter: 2007Q4

REPORT INFORMATION
  Report Type: 
  Country: None (occurrence: None)
  Receive Date: 20071219
  Receipt Date: 20071024
  Transmission Date: 20080405
  Serious: Yes (Death, Hospitalization, Other)
  Sender: FDA-Public Use
  Company Number: US-PURDUE-USA_2007_0030200

PATIENT
  Age: 51 Year
  Sex: Female

DRUGS (10)
  1. ATIVAN [Concomitant]
     Indication: DRUG USE FOR UNKNOWN INDICATION
     Dosage: 5 MG, UNK
     Route: 048
  2. TOPROL-XL [Concomitant]
     Indication: DRUG USE FOR UNKNOWN INDICATION
     Dosage: 50 MG, UNK
     Route: 048
  3. CELEXA [Concomitant]
     Indication: DRUG USE FOR UNKNOWN INDICATION
     Dosage: 20 MG, UNK
     Route: 048
  4. ELAVIL [Concomitant]
     Indication: DRUG USE FOR UNKNOWN INDICATION
     Dosage: 25 MG, UNK
     Route: 048
  5. CALAN [Concomitant]
     Indication: DRUG USE FOR UNKNOWN INDICATION
     Dosage: 240 MG, UNK
     Route: 048
  6. POTASSIUM CHLORIDE [Concomitant]
     Indication: DRUG USE FOR UNKNOWN INDICATION
     Dosage: 10 MEQ, UNK
     Route: 048
  7. COUMADIN [Concomitant]
     Indication: DRUG USE FOR UNKNOWN INDICATION
     Dosage: 10 MG, UNK
     Route: 048
  8. LASIX [Concomitant]
     Indication: DRUG USE FOR UNKNOWN INDICATION
     Dosage: 20 MG, UNK
     Route: 048
  9. DIOVAN [Concomitant]
     Indication: DRUG USE FOR UNKNOWN INDICATION
     Dosage: 80 MG, UNK
     Route: 048
  10. OXYCONTIN [Suspect]
     Indication: PROCEDURAL PAIN
     Dosage: 40 MG, UNK
     Route: 048
     Dates: end: 20020211

REACTIONS (6)
  - ABDOMINAL PAIN UPPER [None]
  - CONFUSIONAL STATE [None]
  - DELUSION [None]
  - DRUG DEPENDENCE [None]
  - OVERDOSE [None]
  - SYSTEMIC LUPUS ERYTHEMATOSUS [None]
